FAERS Safety Report 4463166-3 (Version None)
Quarter: 2004Q3

REPORT INFORMATION
  Report Type: 
  Country: None (occurrence: None)
  Receive Date: 20040928
  Receipt Date: 20040913
  Transmission Date: 20050211
  Serious: No
  Sender: FDA-Public Use
  Company Number: 2004AC00311

PATIENT
  Age: 44 Year
  Sex: Male

DRUGS (6)
  1. PROPOFOL [Suspect]
     Indication: ANAESTHESIA
  2. MIDAZOLAM HCL [Concomitant]
  3. SUCCINYLCHOLINE CHLORIDE [Concomitant]
  4. DESFLURANE [Concomitant]
  5. REMIFENTANIL [Concomitant]
  6. ATRACURIUM [Concomitant]

REACTIONS (5)
  - ANAPHYLACTIC REACTION [None]
  - BLOOD PRESSURE DECREASED [None]
  - FIBRINOLYSIS [None]
  - PILOERECTION [None]
  - THERAPY NON-RESPONDER [None]
